FAERS Safety Report 16641851 (Version 2)
Quarter: 2019Q3

REPORT INFORMATION
  Report Type: Spontaneous
  Country: JP (occurrence: JP)
  Receive Date: 20190729
  Receipt Date: 20190826
  Transmission Date: 20191004
  Serious: Yes (Other)
  Sender: FDA-Public Use
  Company Number: JP-BRISTOL-MYERS SQUIBB COMPANY-BMS-2019-072654

PATIENT
  Age: 83 Year
  Sex: Female

DRUGS (3)
  1. ELIQUIS [Suspect]
     Active Substance: APIXABAN
     Indication: CEREBROVASCULAR ACCIDENT PROPHYLAXIS
     Dosage: 2.5 MILLIGRAM, BID
     Route: 048
  2. ACETYLSALICYLIC ACID [Concomitant]
     Active Substance: ASPIRIN
     Indication: LIPIDS ABNORMAL
     Dosage: UNK
     Route: 065
  3. EPADEL [EICOSAPENTAENOIC ACID ETHYL ESTER] [Concomitant]
     Indication: LIPIDS ABNORMAL
     Dosage: UNK
     Route: 065

REACTIONS (1)
  - Cerebral infarction [Not Recovered/Not Resolved]
